FAERS Safety Report 4345513-6 (Version None)
Quarter: 2004Q1

REPORT INFORMATION
  Report Type: 
  Country: None (occurrence: None)
  Receive Date: 20040319
  Receipt Date: 20031201
  Transmission Date: 20041129
  Serious: No
  Sender: FDA-Public Use
  Company Number: US-JNJFOC-20031200726

PATIENT
  Age: 47 Year
  Sex: Female
  Weight: 82.5547 kg

DRUGS (4)
  1. ORTHO EVRA [Suspect]
     Indication: ENDOMETRIOSIS
     Dosage: 1 DOSE(S), 3 IN 4 WEEK, TRANSDERMAL
     Route: 062
  2. IMITREX (SPRAY) SUMATRIPTAN [Concomitant]
  3. IMITREX (TABLETS) SUMATRIPTAN [Concomitant]
  4. FIORICET [Concomitant]

REACTIONS (1)
  - METRORRHAGIA [None]
